FAERS Safety Report 24789472 (Version 2)
Quarter: 2025Q3

REPORT INFORMATION
  Report Type: Report from Study
  Country: US (occurrence: US)
  Receive Date: 20241230
  Receipt Date: 20250803
  Transmission Date: 20251020
  Serious: Yes (Hospitalization)
  Sender: ALEXION PHARMACEUTICALS
  Company Number: US-AstraZeneca-CH-00773698A

PATIENT
  Sex: Female
  Weight: 88.889 kg

DRUGS (1)
  1. CAPIVASERTIB [Suspect]
     Active Substance: CAPIVASERTIB
     Indication: Breast cancer female
     Dosage: 200 MILLIGRAM, BID

REACTIONS (3)
  - Cancer pain [Recovering/Resolving]
  - Diarrhoea [Recovering/Resolving]
  - Gait disturbance [Unknown]
